FAERS Safety Report 9668226 (Version 3)
Quarter: 2013Q4

REPORT INFORMATION
  Report Type: Spontaneous
  Country: JP (occurrence: JP)
  Receive Date: 20131104
  Receipt Date: 20131126
  Transmission Date: 20140711
  Serious: Yes (Death, Hospitalization)
  Sender: FDA-Public Use
  Company Number: JP-BAXTER-2013BAX042479

PATIENT
  Sex: Male

DRUGS (3)
  1. DIANEAL-N PD-4 2.5 PD SOLUTION [Suspect]
     Indication: RENAL FAILURE CHRONIC
     Route: 033
     Dates: start: 20100420, end: 201310
  2. DIANEAL-N PD-4 2.5 PD SOLUTION [Suspect]
     Indication: DIABETIC NEPHROPATHY
  3. EXTRANEAL PD SOLUTION [Suspect]
     Indication: DIABETIC NEPHROPATHY
     Route: 033
     Dates: end: 201310

REACTIONS (2)
  - Stress cardiomyopathy [Fatal]
  - Blood pressure decreased [Unknown]
